FAERS Safety Report 5527710-7 (Version None)
Quarter: 2007Q4

REPORT INFORMATION
  Report Type: 
  Country: None (occurrence: None)
  Receive Date: 20071121
  Receipt Date: 20071106
  Transmission Date: 20080405
  Serious: Yes (Death)
  Sender: FDA-Public Use
  Company Number: ENC200700190

PATIENT
  Age: 57 Year
  Sex: Male

DRUGS (1)
  1. ARGATROBAN [Suspect]
     Indication: LATERAL MEDULLARY SYNDROME
     Dosage: PARENTERAL
     Route: 051

REACTIONS (2)
  - COMA [None]
  - SUBARACHNOID HAEMORRHAGE [None]
